FAERS Safety Report 10459642 (Version 1)
Quarter: 2014Q3

REPORT INFORMATION
  Report Type: Spontaneous
  Country: US (occurrence: US)
  Receive Date: 20140917
  Receipt Date: 20140917
  Transmission Date: 20150326
  Serious: Yes (Hospitalization, Other)
  Sender: FDA-Public Use
  Company Number: US-BRISTOL-MYERS SQUIBB COMPANY-21382023

PATIENT
  Sex: Male
  Weight: 90.7 kg

DRUGS (4)
  1. ZEGERID [Concomitant]
     Active Substance: OMEPRAZOLE\SODIUM BICARBONATE
  2. ABILIFY [Suspect]
     Active Substance: ARIPIPRAZOLE
     Indication: DEPRESSION
     Dates: start: 2007
  3. ZOLOFT [Concomitant]
     Active Substance: SERTRALINE HYDROCHLORIDE
  4. CLONAZEPAM. [Concomitant]
     Active Substance: CLONAZEPAM

REACTIONS (10)
  - Hepatic steatosis [Recovered/Resolved]
  - Hypertension [Unknown]
  - Neuropathy peripheral [Unknown]
  - Ligament rupture [Unknown]
  - Type 2 diabetes mellitus [Unknown]
  - Ammonia increased [Recovered/Resolved]
  - Blood cholesterol increased [Unknown]
  - Weight increased [Recovered/Resolved]
  - Weight decreased [Recovered/Resolved]
  - Pain in extremity [Unknown]

NARRATIVE: CASE EVENT DATE: 2008
